FAERS Safety Report 19030074 (Version 1)
Quarter: 2021Q1

REPORT INFORMATION
  Report Type: Spontaneous
  Country: US (occurrence: US)
  Receive Date: 20210317
  Receipt Date: 20210317
  Transmission Date: 20210420
  Serious: No
  Sender: FDA-Public Use
  Company Number: None

PATIENT
  Sex: Female

DRUGS (1)
  1. BOTOX ++TOXIN TYPE A 100U/VL NONE [Suspect]
     Active Substance: BOTULINUM TOXIN TYPE A
     Indication: POST-TRAUMATIC HEADACHE
     Dosage: ?          OTHER STRENGTH:100U/VL;OTHER FREQUENCY:EVERY 12 WEEKS;?
     Route: 030
     Dates: start: 20200415, end: 20201106

REACTIONS (15)
  - Eye pruritus [None]
  - Paraesthesia [None]
  - Diarrhoea [None]
  - Ear discomfort [None]
  - Drug ineffective [None]
  - Vision blurred [None]
  - Headache [None]
  - Fatigue [None]
  - Constipation [None]
  - Photosensitivity reaction [None]
  - Head discomfort [None]
  - Dyspepsia [None]
  - Insomnia [None]
  - Tension headache [None]
  - Dry eye [None]
